FAERS Safety Report 4470528-7 (Version None)
Quarter: 2004Q4

REPORT INFORMATION
  Report Type: 
  Country: None (occurrence: None)
  Receive Date: 20041001
  Receipt Date: 20040922
  Transmission Date: 20050328
  Serious: Yes (Hospitalization)
  Sender: FDA-Public Use
  Company Number: DE-2004-028167

PATIENT
  Sex: Female

DRUGS (4)
  1. BETAFERON (INTERFERON BETA-1B) INJECTION, 250UG [Suspect]
     Dosage: SUBCUTANEOUS
     Route: 058
     Dates: start: 20040615
  2. MULTIVITAMINS, PLAIN [Concomitant]
  3. IBUPROFEN [Concomitant]
  4. LIORESAL ^CIBA-GEICY^ [Concomitant]

REACTIONS (4)
  - CONDITION AGGRAVATED [None]
  - INFLUENZA LIKE ILLNESS [None]
  - MUSCLE SPASTICITY [None]
  - SENSORY DISTURBANCE [None]
